FAERS Safety Report 26197551 (Version 1)
Quarter: 2025Q4

REPORT INFORMATION
  Report Type: Spontaneous
  Country: US (occurrence: US)
  Receive Date: 20251224
  Receipt Date: 20251224
  Transmission Date: 20260119
  Serious: No
  Sender: SANOFI AVENTIS
  Company Number: US-SA-2025SA382683

PATIENT
  Age: 26 Year
  Sex: Male

DRUGS (1)
  1. FABRAZYME [Suspect]
     Active Substance: AGALSIDASE BETA

REACTIONS (4)
  - Globotriaosylsphingosine increased [Not Recovered/Not Resolved]
  - Globotriaosylceramide increased [Not Recovered/Not Resolved]
  - Drug specific antibody present [Not Recovered/Not Resolved]
  - Neutralising antibodies positive [Recovered/Resolved]

NARRATIVE: CASE EVENT DATE: 20250829
